FAERS Safety Report 5757161-1 (Version None)
Quarter: 2008Q2

REPORT INFORMATION
  Report Type: 
  Country: None (occurrence: None)
  Receive Date: 20080529
  Receipt Date: 20080519
  Transmission Date: 20081010
  Serious: No
  Sender: FDA-Public Use
  Company Number: 20085135

PATIENT
  Sex: Male

DRUGS (2)
  1. LIORESAL [Suspect]
     Indication: MUSCLE SPASTICITY
     Dosage: UNK MCG DAILY INTRATHECAL
     Route: 037
  2. PUMP ALSO CONTAINED MORPHINE [Concomitant]

REACTIONS (4)
  - DRUG INEFFECTIVE [None]
  - MENTAL STATUS CHANGES [None]
  - SPEECH DISORDER [None]
  - VISUAL DISTURBANCE [None]
